FAERS Safety Report 24203884 (Version 1)
Quarter: 2024Q3

REPORT INFORMATION
  Report Type: Spontaneous
  Country: PT (occurrence: PT)
  Receive Date: 20240813
  Receipt Date: 20240813
  Transmission Date: 20241016
  Serious: Yes (Hospitalization, Other)
  Sender: AUROBINDO
  Company Number: PT-MLMSERVICE-20240718-PI121080-00311-1

PATIENT
  Age: 92 Year
  Sex: Male

DRUGS (3)
  1. TERBINAFINE [Suspect]
     Active Substance: TERBINAFINE
     Indication: Onychomycosis
     Dosage: 250 MILLIGRAM, ONCE A DAY (1 PILL PER DAY, WAS STARTED 1 MONTH BEFORE HOSPITALIZATION)
     Route: 065
  2. BETAHISTINE [Concomitant]
     Active Substance: BETAHISTINE
     Indication: Product used for unknown indication
     Dosage: 16 MILLIGRAM, ONCE A DAY (16 MG OF ?-HISTINA (1 PILL 2 TIMES PER DAY))
     Route: 065
  3. Losartan+hidroclortiazida [Concomitant]
     Dosage: 1 DOSAGE FORM, ONCE A DAY ( (1 PILL PER DAY), LOSARTAN + HYDROCHLOROTHIAZIDE 50/12 MG)
     Route: 065

REACTIONS (2)
  - Drug-induced liver injury [Recovering/Resolving]
  - Hepatitis toxic [Recovering/Resolving]
